FAERS Safety Report 26144235 (Version 1)
Quarter: 2025Q4

REPORT INFORMATION
  Report Type: Spontaneous
  Country: US (occurrence: US)
  Receive Date: 20251211
  Receipt Date: 20251211
  Transmission Date: 20260117
  Serious: Yes (Other)
  Sender: AUROBINDO
  Company Number: US-MLMSERVICE-20251121-PI721892-00128-1

PATIENT
  Age: 54 Year
  Sex: Male

DRUGS (4)
  1. MITOMYCIN C [Suspect]
     Active Substance: MITOMYCIN
     Indication: Follicular thyroid cancer
     Dosage: UNK (DOXORUBICIN AND MITOMYCIN C WERE ADMINISTERED IN AN EMULSION WITH ENDOTHELIALIZED OIL AND EMBOZENE MICROSPHERES.)
     Route: 065
  2. MITOMYCIN C [Suspect]
     Active Substance: MITOMYCIN
     Indication: Metastases to bone
  3. DOXORUBICIN [Suspect]
     Active Substance: DOXORUBICIN
     Indication: Follicular thyroid cancer
     Dosage: UNK [DOXORUBICIN AND MITOMYCIN C WERE ADMINISTERED IN AN EMULSION WITH ENDOTHELIALIZED OIL AND EMBOZENE MICROSPHERES.]
     Route: 065
  4. DOXORUBICIN [Suspect]
     Active Substance: DOXORUBICIN
     Indication: Metastases to bone

REACTIONS (2)
  - Myelitis transverse [Recovering/Resolving]
  - Product preparation error [Unknown]
